FAERS Safety Report 8760236 (Version 1)
Quarter: 2012Q4

REPORT INFORMATION
  Report Type: Spontaneous
  Country: US (occurrence: None)
  Receive Date: 20120828
  Receipt Date: 20120828
  Transmission Date: 20130627
  Serious: No
  Sender: FDA-Public Use
  Company Number: None

PATIENT
  Sex: Male
  Weight: 81.65 kg

DRUGS (1)
  1. RISPERADONE [Suspect]
     Dosage: few years ago

REACTIONS (3)
  - Feeling abnormal [None]
  - Panic disorder [None]
  - Apparent death [None]
